FAERS Safety Report 8918673 (Version 2)
Quarter: 2012Q4

REPORT INFORMATION
  Report Type: Report from Study
  Country: DK (occurrence: JP)
  Receive Date: 20121120
  Receipt Date: 20121218
  Transmission Date: 20130627
  Serious: Yes (Hospitalization)
  Sender: FDA-Public Use
  Company Number: JP-FRI-1000040463

PATIENT
  Age: 85 Year
  Sex: Female
  Weight: 29 kg

DRUGS (6)
  1. ESCITALOPRAM [Suspect]
     Indication: DEPRESSION
     Dosage: 10 mg
     Route: 048
     Dates: start: 20120820
  2. ZOPICOOL [Concomitant]
     Indication: DEPRESSION
     Dosage: 7.5 mg
     Route: 048
     Dates: start: 20120822
  3. ZESTROMIN [Concomitant]
     Indication: DEPRESSION
     Dosage: 0.25 mg
     Route: 048
     Dates: start: 20120817
  4. PARULEON [Concomitant]
     Indication: DEPRESSION
     Dosage: 0.5 mg
     Route: 048
     Dates: start: 20120829
  5. SENIRAN [Concomitant]
     Indication: DEPRESSION
     Dosage: 2 mg
     Route: 048
     Dates: start: 20120910
  6. REFLEX [Concomitant]
     Indication: DEPRESSION
     Dosage: 15 mg
     Route: 048
     Dates: start: 20120827

REACTIONS (2)
  - Fall [Recovering/Resolving]
  - Femoral neck fracture [Recovering/Resolving]
